FAERS Safety Report 15982148 (Version 4)
Quarter: 2020Q3

REPORT INFORMATION
  Report Type: Report from Study
  Country: DK (occurrence: DK)
  Receive Date: 20190219
  Receipt Date: 20190415
  Transmission Date: 20201105
  Serious: Yes (Life-Threatening, Hospitalization)
  Sender: FDA-Public Use
  Company Number: DK-JNJFOC-20190219837

PATIENT
  Age: 71 Year
  Sex: Male
  Weight: 91 kg

DRUGS (17)
  1. IBRUTINIB [Suspect]
     Active Substance: IBRUTINIB
     Route: 048
  2. IBRUTINIB [Suspect]
     Active Substance: IBRUTINIB
     Indication: CHRONIC LYMPHOCYTIC LEUKAEMIA
     Route: 048
     Dates: start: 20181017
  3. PARACETAMOL [Concomitant]
     Active Substance: ACETAMINOPHEN
     Indication: BACK PAIN
     Route: 048
     Dates: start: 20180912
  4. BUVENTOL [Concomitant]
     Indication: NASOPHARYNGITIS
     Route: 055
     Dates: start: 20190207
  5. LOSARTAN. [Concomitant]
     Active Substance: LOSARTAN
     Indication: HYPERTENSION
     Route: 048
     Dates: start: 20161020
  6. SPIRIVA [Concomitant]
     Active Substance: TIOTROPIUM BROMIDE MONOHYDRATE
     Indication: NASOPHARYNGITIS
     Route: 055
     Dates: start: 20160412
  7. ZARATOR [Concomitant]
     Active Substance: ATORVASTATIN CALCIUM
     Indication: MYOCARDIAL ISCHAEMIA
     Route: 048
     Dates: start: 20151028
  8. ALLOPURINOL. [Concomitant]
     Active Substance: ALLOPURINOL
     Indication: TUMOUR LYSIS SYNDROME
     Route: 048
     Dates: start: 20181018
  9. LERCANIDIPINE [Concomitant]
     Active Substance: LERCANIDIPINE
     Indication: HYPERTENSION
     Route: 048
     Dates: start: 20160923
  10. ACICLOVIR [Concomitant]
     Active Substance: ACYCLOVIR
     Indication: NEOPLASM
     Route: 048
     Dates: start: 20190117, end: 20190119
  11. BIOCLAVID [Concomitant]
     Active Substance: AMOXICILLIN\CLAVULANIC ACID
     Indication: PNEUMONIA
     Route: 048
     Dates: start: 20190128, end: 20190204
  12. KININ [Concomitant]
     Active Substance: QUININE HYDROCHLORIDE
     Indication: PROPHYLAXIS
     Route: 048
     Dates: start: 20180912
  13. VENETOCLAX. [Suspect]
     Active Substance: VENETOCLAX
     Indication: CHRONIC LYMPHOCYTIC LEUKAEMIA
     Route: 048
     Dates: start: 20190206
  14. ACETYLSALICYLSYRE [Concomitant]
     Active Substance: ASPIRIN
     Indication: PROPHYLAXIS
     Route: 048
     Dates: start: 20141024
  15. ACICLOVIR [Concomitant]
     Active Substance: ACYCLOVIR
     Indication: NEOPLASM
     Route: 048
     Dates: start: 20190116, end: 20190117
  16. IMODIUM [Concomitant]
     Active Substance: LOPERAMIDE HYDROCHLORIDE
     Indication: DIARRHOEA
     Route: 048
     Dates: start: 20190206
  17. BRALTUS [Concomitant]
     Active Substance: TIOTROPIUM BROMIDE
     Indication: NASOPHARYNGITIS
     Route: 055
     Dates: start: 20190207

REACTIONS (2)
  - Pneumothorax [Recovered/Resolved]
  - Haemoptysis [Recovered/Resolved]

NARRATIVE: CASE EVENT DATE: 20190213
